FAERS Safety Report 13719336 (Version 4)
Quarter: 2018Q1

REPORT INFORMATION
  Report Type: Spontaneous
  Country: US (occurrence: US)
  Receive Date: 20170705
  Receipt Date: 20180220
  Transmission Date: 20180508
  Serious: Yes (Hospitalization)
  Sender: FDA-Public Use
  Company Number: US-PFIZER INC-2017285167

PATIENT
  Age: 44 Year
  Sex: Female
  Weight: 113.4 kg

DRUGS (3)
  1. LYRICA [Suspect]
     Active Substance: PREGABALIN
     Dosage: 200 MG, 3X/DAY
     Route: 048
     Dates: start: 2015
  2. LYRICA [Suspect]
     Active Substance: PREGABALIN
     Indication: NEURALGIA
     Dosage: UNK
     Route: 048
  3. LYRICA [Suspect]
     Active Substance: PREGABALIN
     Indication: FIBROMYALGIA
     Dosage: UNK (OVER 150 MG A DAY)
     Route: 048

REACTIONS (6)
  - Fatigue [Unknown]
  - Weight increased [Unknown]
  - Speech disorder [Not Recovered/Not Resolved]
  - Fibromyalgia [Unknown]
  - Stress [Unknown]
  - Condition aggravated [Unknown]

NARRATIVE: CASE EVENT DATE: 2005
